FAERS Safety Report 9466736 (Version 1)
Quarter: 2013Q3

REPORT INFORMATION
  Report Type: Spontaneous
  Country: US (occurrence: US)
  Receive Date: 20130820
  Receipt Date: 20130820
  Transmission Date: 20140515
  Serious: Yes (Other)
  Sender: FDA-Public Use
  Company Number: US-BAYER-2013-099590

PATIENT
  Age: 24 Year
  Sex: Female

DRUGS (1)
  1. BETASERON [Suspect]
     Dosage: UNK
     Dates: end: 201308

REACTIONS (2)
  - Pulmonary thrombosis [None]
  - Intracardiac thrombus [None]
